FAERS Safety Report 6556728-0 (Version None)
Quarter: 2010Q1

REPORT INFORMATION
  Report Type: 
  Country: None (occurrence: None)
  Receive Date: 20100128
  Receipt Date: 20100108
  Transmission Date: 20100710
  Serious: Yes (Other)
  Sender: FDA-Public Use
  Company Number: US-JNJFOC-20100103659

PATIENT
  Sex: Female
  Weight: 54.43 kg

DRUGS (3)
  1. LEVAQUIN [Suspect]
     Indication: GASTROINTESTINAL INFECTION
     Route: 048
  2. LEVAQUIN [Suspect]
     Route: 048
  3. KLONOPIN [Concomitant]
     Indication: SLEEP DISORDER
     Dosage: ONE AT NIGHT OR WHEN NEEDED
     Route: 048

REACTIONS (8)
  - DIZZINESS [None]
  - FEELING ABNORMAL [None]
  - HYPOTENSION [None]
  - PALPITATIONS [None]
  - VISION BLURRED [None]
  - VISUAL ACUITY REDUCED [None]
  - WEIGHT DECREASED [None]
  - WRONG TECHNIQUE IN DRUG USAGE PROCESS [None]
